FAERS Safety Report 10338245 (Version 1)
Quarter: 2014Q3

REPORT INFORMATION
  Report Type: Spontaneous
  Country: US (occurrence: US)
  Receive Date: 20140724
  Receipt Date: 20140724
  Transmission Date: 20150326
  Serious: No
  Sender: FDA-Public Use
  Company Number: US-PFIZER INC-2014202996

PATIENT
  Sex: Male

DRUGS (1)
  1. CAVERJECT [Suspect]
     Active Substance: ALPROSTADIL
     Indication: ERECTILE DYSFUNCTION
     Dosage: 40 MCG X 0.3 ML, UNK
     Dates: start: 201310

REACTIONS (4)
  - Labelled drug-disease interaction medication error [Unknown]
  - Drug ineffective [Unknown]
  - Erectile dysfunction [Unknown]
  - Penile pain [Unknown]

NARRATIVE: CASE EVENT DATE: 201310
